FAERS Safety Report 15868139 (Version 1)
Quarter: 2019Q1

REPORT INFORMATION
  Report Type: Spontaneous
  Country: AR (occurrence: AR)
  Receive Date: 20190125
  Receipt Date: 20190125
  Transmission Date: 20190417
  Serious: Yes (Other)
  Sender: FDA-Public Use
  Company Number: AR-PFIZER INC-2019030806

PATIENT
  Age: 81 Year
  Sex: Male

DRUGS (4)
  1. LYRICA [Suspect]
     Active Substance: PREGABALIN
     Indication: SPINAL PAIN
     Dosage: 150 MG, 2X/DAY
     Dates: start: 2008
  2. IBUPROFENO [Concomitant]
     Active Substance: IBUPROFEN
  3. CODEINA [Concomitant]
     Active Substance: CODEINE
  4. DICLOFENAC [Concomitant]
     Active Substance: DICLOFENAC

REACTIONS (6)
  - Spinal disorder [Unknown]
  - Spinal cord compression [Unknown]
  - Gait disturbance [Unknown]
  - Condition aggravated [Unknown]
  - Intentional product use issue [Unknown]
  - Insomnia [Unknown]
